FAERS Safety Report 15761657 (Version 2)
Quarter: 2019Q1

REPORT INFORMATION
  Report Type: Spontaneous
  Country: US (occurrence: US)
  Receive Date: 20181226
  Receipt Date: 20190116
  Transmission Date: 20190417
  Serious: Yes (Other)
  Sender: FDA-Public Use
  Company Number: US-AKORN PHARMACEUTICALS-2018AKN01954

PATIENT
  Sex: Male
  Weight: 72.11 kg

DRUGS (3)
  1. UNSPECIFIED NSAIDS [Concomitant]
     Active Substance: UNSPECIFIED INGREDIENT
  2. KEFLEX [Concomitant]
     Active Substance: CEPHALEXIN
  3. MYORISAN [Suspect]
     Active Substance: ISOTRETINOIN
     Indication: ACNE
     Dosage: 40 MG, 2X/DAY
     Dates: start: 20180917, end: 20181130

REACTIONS (3)
  - Wound infection [Not Recovered/Not Resolved]
  - Wound secretion [Not Recovered/Not Resolved]
  - Skin ulcer [Not Recovered/Not Resolved]

NARRATIVE: CASE EVENT DATE: 2018
